FAERS Safety Report 16227809 (Version 1)
Quarter: 2019Q2

REPORT INFORMATION
  Report Type: Spontaneous
  Country: ZA (occurrence: ZA)
  Receive Date: 20190423
  Receipt Date: 20190423
  Transmission Date: 20190711
  Serious: Yes (Other)
  Sender: FDA-Public Use
  Company Number: ZA-BAYER-2019-078631

PATIENT
  Sex: Female

DRUGS (7)
  1. SINUMAX ALLERGY [Concomitant]
  2. YAZ [Suspect]
     Active Substance: DROSPIRENONE\ETHINYL ESTRADIOL
     Route: 048
  3. AMUCO [Concomitant]
     Active Substance: ACETYLCYSTEINE
  4. AUGMENTIN BD [Concomitant]
     Active Substance: AMOXICILLIN\CLAVULANIC ACID
  5. VIBROCIL-S [Concomitant]
  6. REHIDRAT [Concomitant]
  7. KETEK [CLARITHROMYCIN] [Concomitant]

REACTIONS (10)
  - Dizziness [None]
  - Lip discolouration [None]
  - Pulmonary embolism [None]
  - Chest pain [None]
  - Vomiting [None]
  - Syncope [None]
  - Dark circles under eyes [None]
  - Nausea [None]
  - Back pain [None]
  - Fatigue [None]

NARRATIVE: CASE EVENT DATE: 201804
